FAERS Safety Report 7582456-9 (Version None)
Quarter: 2011Q2

REPORT INFORMATION
  Report Type: 
  Country: None (occurrence: None)
  Receive Date: 20110630
  Receipt Date: 20110623
  Transmission Date: 20111010
  Serious: No
  Sender: FDA-Public Use
  Company Number: US-PFIZER INC-2011140992

PATIENT
  Sex: Male

DRUGS (3)
  1. TIKOSYN [Suspect]
     Dosage: UNK
  2. FORADIL [Suspect]
     Dosage: UNK
  3. MOMETASONE FUROATE [Suspect]
     Dosage: UNK

REACTIONS (1)
  - DYSPHONIA [None]
